FAERS Safety Report 5502343-7 (Version None)
Quarter: 2007Q4

REPORT INFORMATION
  Report Type: 
  Country: None (occurrence: None)
  Receive Date: 20071030
  Receipt Date: 20071024
  Transmission Date: 20080405
  Serious: Yes (Hospitalization, Other)
  Sender: FDA-Public Use
  Company Number: JP-SHR-JP-2007-017437

PATIENT
  Age: 25 Year
  Sex: Female
  Weight: 52 kg

DRUGS (16)
  1. CAMPATH [Suspect]
     Indication: ALLOGENIC BONE MARROW TRANSPLANTATION THERAPY
     Dosage: 8.3 MG, 1X/DAY
     Route: 041
     Dates: start: 20070504, end: 20070509
  2. FLUDARA [Concomitant]
     Indication: ALLOGENIC BONE MARROW TRANSPLANTATION THERAPY
     Dosage: 44 MG, 1X/DAY
     Route: 041
     Dates: start: 20070508, end: 20070511
  3. ENDOXAN [Concomitant]
     Indication: ALLOGENIC BONE MARROW TRANSPLANTATION THERAPY
     Dosage: 1300 MG, 1X/DAY
     Route: 041
     Dates: start: 20070508, end: 20070511
  4. ZOVIRAX [Concomitant]
     Indication: HERPES SIMPLEX
     Dosage: 5 TAB(S), 1X/DAY
     Route: 048
     Dates: start: 20070503
  5. CRAVIT [Concomitant]
     Indication: INFECTION PROPHYLAXIS
     Dosage: 100 MG, 3X/DAY
     Route: 048
     Dates: start: 20070503
  6. DIFLUCAN [Concomitant]
     Indication: ANTIFUNGAL PROPHYLAXIS
     Dosage: 2 CAP(S), 2X/DAY
     Route: 048
     Dates: start: 20070503
  7. SANDIMMUNE [Concomitant]
     Indication: PROPHYLAXIS AGAINST GRAFT VERSUS HOST DISEASE
     Dosage: 150 MG, 1X/DAY
     Route: 041
     Dates: start: 20070513
  8. SOLU-MEDROL [Concomitant]
     Indication: PREMEDICATION
     Dosage: 125 MG, 1X/DAY
     Route: 041
     Dates: start: 20070514, end: 20070514
  9. POLARAMINE [Concomitant]
     Indication: PREMEDICATION
     Dosage: 5 MG, 1X/DAY
     Route: 041
     Dates: start: 20070514, end: 20070514
  10. NEORAL [Suspect]
     Indication: PROPHYLAXIS AGAINST GRAFT VERSUS HOST DISEASE
     Dosage: 200 MG, 2X/DAY
     Route: 048
     Dates: start: 20070628
  11. MARZULENE S [Concomitant]
     Indication: GASTRITIS PROPHYLAXIS
     Dosage: .5 G, AS REQ'D
     Route: 048
     Dates: start: 20070607
  12. LOXONIN [Concomitant]
     Indication: PAIN
     Dosage: 60 MG, AS REQ'D
     Route: 048
     Dates: start: 20070609
  13. ADALAT [Concomitant]
     Indication: BLOOD PRESSURE MANAGEMENT
     Dosage: 20 MG, 1X/DAY
     Route: 048
     Dates: start: 20070602
  14. BAKTAR [Concomitant]
     Dosage: 1 TAB(S), EVERY 2D
     Route: 048
     Dates: start: 20070801
  15. ITRIZOLE [Concomitant]
     Indication: ANTIFUNGAL PROPHYLAXIS
     Dosage: 200 MG, 1X/DAY
     Route: 048
     Dates: start: 20070607
  16. FOLIAMIN [Concomitant]
     Dosage: 5 MG, 1X/DAY
     Route: 048
     Dates: start: 20070801

REACTIONS (2)
  - HERPES ZOSTER [None]
  - SUBARACHNOID HAEMORRHAGE [None]
